FAERS Safety Report 9167138 (Version 4)
Quarter: 2013Q2

REPORT INFORMATION
  Report Type: Spontaneous
  Country: US (occurrence: US)
  Receive Date: 20130318
  Receipt Date: 20130618
  Transmission Date: 20140414
  Serious: Yes (Hospitalization)
  Sender: FDA-Public Use
  Company Number: US-BIOGENIDEC-2013BI023348

PATIENT
  Age: 58 Year
  Sex: Male

DRUGS (14)
  1. TYSABRI [Suspect]
     Indication: MULTIPLE SCLEROSIS
     Route: 042
     Dates: start: 20110615
  2. PROTONIX [Concomitant]
     Route: 048
  3. NOVOLOG [Concomitant]
  4. LANTUS [Concomitant]
  5. JANUVIA [Concomitant]
     Route: 048
  6. COREG [Concomitant]
     Route: 048
  7. SYMMETREL [Concomitant]
     Route: 048
  8. MOTRIN [Concomitant]
     Route: 048
  9. LIPITOR [Concomitant]
     Route: 048
  10. DEPAKOTE [Concomitant]
     Route: 048
  11. VITAMIN D [Concomitant]
     Route: 048
  12. DULCOLAX (BISACODYL) [Concomitant]
  13. ULTRAM [Concomitant]
  14. TYLENOL [Concomitant]

REACTIONS (10)
  - Urinary tract infection [Recovered/Resolved]
  - Multiple sclerosis relapse [Unknown]
  - Fall [Recovered/Resolved]
  - Pelvic fracture [Not Recovered/Not Resolved]
  - Fractured sacrum [Unknown]
  - Femur fracture [Unknown]
  - Tibia fracture [Unknown]
  - Agitation [Unknown]
  - Confusional state [Unknown]
  - Delusion [Unknown]
